FAERS Safety Report 8991547 (Version 3)
Quarter: 2013Q1

REPORT INFORMATION
  Report Type: Spontaneous
  Country: US (occurrence: US)
  Receive Date: 20121231
  Receipt Date: 20130312
  Transmission Date: 20140127
  Serious: No
  Sender: FDA-Public Use
  Company Number: US-BIOGENIDEC-2012BI063006

PATIENT
  Age: 53 None
  Sex: Female

DRUGS (2)
  1. TYSABRI [Suspect]
     Indication: MULTIPLE SCLEROSIS
     Route: 042
     Dates: start: 20110617, end: 20121121
  2. AZOR [Concomitant]
     Indication: HYPERTENSION

REACTIONS (9)
  - Paraesthesia [Not Recovered/Not Resolved]
  - Blood cortisol decreased [Unknown]
  - Weight decreased [Recovered/Resolved]
  - Alopecia [Recovered/Resolved]
  - Hypotension [Recovered/Resolved]
  - Malaise [Unknown]
  - Sinusitis [Not Recovered/Not Resolved]
  - Bronchitis [Unknown]
  - Upper respiratory tract infection [Not Recovered/Not Resolved]
